FAERS Safety Report 16314552 (Version 1)
Quarter: 2019Q2

REPORT INFORMATION
  Report Type: Spontaneous
  Country: AT (occurrence: AT)
  Receive Date: 20190515
  Receipt Date: 20190515
  Transmission Date: 20190711
  Serious: Yes (Hospitalization)
  Sender: FDA-Public Use
  Company Number: AT-EISAI MEDICAL RESEARCH-EC-2019-056068

PATIENT
  Age: 56 Year
  Sex: Male

DRUGS (3)
  1. FRISIUM [Concomitant]
     Active Substance: CLOBAZAM
     Indication: EPILEPSY
     Route: 048
  2. LAMOTRIGINE. [Concomitant]
     Active Substance: LAMOTRIGINE
     Indication: EPILEPSY
     Route: 048
  3. FYCOMPA [Suspect]
     Active Substance: PERAMPANEL
     Indication: EPILEPSY
     Route: 048

REACTIONS (2)
  - Irritability [Recovered/Resolved]
  - Aggression [Recovered/Resolved]

NARRATIVE: CASE EVENT DATE: 20190401
